FAERS Safety Report 26149571 (Version 1)
Quarter: 2025Q4

REPORT INFORMATION
  Report Type: Spontaneous
  Country: EU (occurrence: EU)
  Receive Date: 20251212
  Receipt Date: 20251212
  Transmission Date: 20260118
  Serious: Yes (Hospitalization)
  Sender: ROCHE
  Company Number: EU-ROCHE-10000455281

PATIENT
  Sex: Female

DRUGS (2)
  1. ATEZOLIZUMAB [Suspect]
     Active Substance: ATEZOLIZUMAB
     Indication: Hepatocellular carcinoma
     Dosage: 1ST LINE TREATMENT WITH 11 CYCLES
  2. BEVACIZUMAB [Suspect]
     Active Substance: BEVACIZUMAB
     Indication: Hepatocellular carcinoma
     Dosage: 1ST LINE TREATMENT WITH 11 CYCLES

REACTIONS (4)
  - Disease progression [Unknown]
  - Nephrotic syndrome [Unknown]
  - Renal injury [Recovered/Resolved]
  - Albuminuria [Unknown]
